FAERS Safety Report 5078478-2 (Version None)
Quarter: 2006Q3

REPORT INFORMATION
  Report Type: 
  Country: None (occurrence: None)
  Receive Date: 20060811
  Receipt Date: 20060801
  Transmission Date: 20061208
  Serious: Yes (Disabling)
  Sender: FDA-Public Use
  Company Number: DE-SANOFI-SYNTHELABO-A01200606143

PATIENT
  Age: 89 Year
  Sex: Female

DRUGS (1)
  1. ISCOVER [Suspect]
     Indication: CEREBROVASCULAR ACCIDENT
     Dosage: UNK
     Route: 048

REACTIONS (3)
  - AGEUSIA [None]
  - ANOSMIA [None]
  - SNEEZING [None]
